FAERS Safety Report 19212017 (Version 5)
Quarter: 2021Q4

REPORT INFORMATION
  Report Type: Report from Study
  Country: CO (occurrence: CO)
  Receive Date: 20210504
  Receipt Date: 20211228
  Transmission Date: 20220303
  Serious: Yes (Other)
  Sender: FDA-Public Use
  Company Number: NVSC2021CO093461

PATIENT
  Age: 81 Year
  Sex: Male
  Weight: 61 kg

DRUGS (6)
  1. JADENU [Suspect]
     Active Substance: DEFERASIROX
     Indication: Thalassaemia
     Dosage: 1 DF, QD
     Route: 048
  2. JADENU [Suspect]
     Active Substance: DEFERASIROX
     Dosage: 2 DF, QD
     Route: 048
  3. JADENU [Suspect]
     Active Substance: DEFERASIROX
     Dosage: 720 MG, QD/ONCE A DAY(2 OF 360 MG)
     Route: 048
  4. HOMEOPATHICS [Concomitant]
     Active Substance: HOMEOPATHICS
     Indication: Prostate cancer
     Dosage: UNK
     Route: 065
  5. LEUPROLIDE [Concomitant]
     Active Substance: LEUPROLIDE
     Indication: Blood testosterone decreased
     Dosage: UNK, EVERY 6 MONTHS (ONE YEAR AND A HALF AGO)
     Route: 065
  6. TAMSULOSIN [Concomitant]
     Active Substance: TAMSULOSIN
     Indication: Pollakiuria
     Dosage: 30 MG, QD (1 YEAR AND A HALF AGO)
     Route: 065

REACTIONS (7)
  - Free prostate-specific antigen increased [Unknown]
  - Dental caries [Unknown]
  - Memory impairment [Unknown]
  - Serum ferritin increased [Recovering/Resolving]
  - Haemoglobin decreased [Unknown]
  - Incorrect dose administered [Unknown]
  - Decreased appetite [Unknown]

NARRATIVE: CASE EVENT DATE: 20210414
